FAERS Safety Report 19499222 (Version 4)
Quarter: 2021Q4

REPORT INFORMATION
  Report Type: Report from Study
  Country: ZA (occurrence: ZA)
  Receive Date: 20210706
  Receipt Date: 20211006
  Transmission Date: 20220303
  Serious: Yes (Other)
  Sender: FDA-Public Use
  Company Number: NVSC2021ZA084046

PATIENT
  Age: 72 Year
  Sex: Female

DRUGS (8)
  1. ACLASTA [Suspect]
     Active Substance: ZOLEDRONIC ACID
     Indication: Osteoporosis
     Dosage: 5 MG, Q12MO
     Route: 042
     Dates: start: 20150722
  2. ACLASTA [Suspect]
     Active Substance: ZOLEDRONIC ACID
     Dosage: 5 MG, Q12MO( 5MG/100ML)
     Route: 042
     Dates: start: 20160727
  3. ACLASTA [Suspect]
     Active Substance: ZOLEDRONIC ACID
     Dosage: UNK
     Route: 065
  4. ACLASTA [Suspect]
     Active Substance: ZOLEDRONIC ACID
     Dosage: UNK
     Route: 065
  5. ACLASTA [Suspect]
     Active Substance: ZOLEDRONIC ACID
     Dosage: UNK
     Route: 065
  6. TAMOXIFEN [Concomitant]
     Active Substance: TAMOXIFEN
     Indication: Product used for unknown indication
     Dosage: UNK
     Route: 065
  7. STILPANE [Concomitant]
     Indication: Product used for unknown indication
     Dosage: UNK
     Route: 065
  8. SPASMED [Concomitant]
     Indication: Product used for unknown indication
     Dosage: UNK
     Route: 065

REACTIONS (15)
  - Parkinson^s disease [Not Recovered/Not Resolved]
  - Stress [Unknown]
  - Back disorder [Unknown]
  - Intervertebral disc protrusion [Unknown]
  - Nerve compression [Unknown]
  - Spinal osteoarthritis [Unknown]
  - Back pain [Unknown]
  - Sciatica [Unknown]
  - Hypoaesthesia [Unknown]
  - Paraesthesia [Unknown]
  - Dysgeusia [Recovered/Resolved]
  - Pain [Unknown]
  - Arthritis [Unknown]
  - Bone pain [Unknown]
  - Tremor [Unknown]

NARRATIVE: CASE EVENT DATE: 20170818
